FAERS Safety Report 9490127 (Version 1)
Quarter: 2013Q3

REPORT INFORMATION
  Report Type: Spontaneous
  Country: NO (occurrence: NO)
  Receive Date: 20130830
  Receipt Date: 20130830
  Transmission Date: 20140515
  Serious: Yes (Hospitalization, Other)
  Sender: FDA-Public Use
  Company Number: NO-MERCK-1308NOR011923

PATIENT
  Age: 17 Year
  Sex: Female

DRUGS (8)
  1. AERIUS [Suspect]
     Dosage: 5 MG, QD
     Dates: start: 20130605, end: 20130605
  2. ZADITEN [Concomitant]
     Dosage: 0,25 MG/ML IN BOTH EYES 2 TIMES A DAY
     Route: 047
  3. FLUTIDE [Concomitant]
     Dosage: 100 MICROGRAM/DOSE X 2
     Route: 055
  4. DEPO-PROVERA [Concomitant]
     Dosage: 150 MG, QM3
     Route: 030
  5. VENTOLINE (ALBUTEROL SULFATE) [Concomitant]
     Dosage: 0,2 MG/DOSE X 2
  6. AVAMYS [Concomitant]
     Dosage: 27.5 MICROGRAM, QD
     Route: 045
  7. LEVAXIN [Concomitant]
     Dosage: 50 MICROGRAM, QD
     Route: 048
  8. LORATADINE [Concomitant]
     Dosage: UNK
     Route: 048

REACTIONS (5)
  - Swelling face [Recovered/Resolved]
  - Dyspnoea [Recovered/Resolved]
  - Hypersensitivity [Recovered/Resolved]
  - Urticaria [Recovered/Resolved]
  - Erythema [Recovered/Resolved]
